FAERS Safety Report 4339557-8 (Version None)
Quarter: 2004Q1

REPORT INFORMATION
  Report Type: 
  Country: None (occurrence: None)
  Receive Date: 20040329
  Receipt Date: 20031229
  Transmission Date: 20041129
  Serious: No
  Sender: FDA-Public Use
  Company Number: 04P-163-0246915-00

PATIENT
  Sex: Female

DRUGS (1)
  1. HUMIRA [Suspect]
     Dosage: 40 MG SUBCUTANEOUS
     Route: 058
     Dates: start: 20030101, end: 20030101

REACTIONS (4)
  - FALL [None]
  - LIMB INJURY [None]
  - NASOPHARYNGITIS [None]
  - RASH [None]
